FAERS Safety Report 7995220-3 (Version None)
Quarter: 2011Q4

REPORT INFORMATION
  Report Type: 
  Country: None (occurrence: None)
  Receive Date: 20111220
  Receipt Date: 20111210
  Transmission Date: 20120403
  Serious: Yes (Other)
  Sender: FDA-Public Use
  Company Number: US-BAYER-2011-109300

PATIENT
  Sex: Female

DRUGS (4)
  1. ALEVE (CAPLET) [Suspect]
     Route: 048
  2. NEURONTIN [Concomitant]
     Dosage: CONSUMER TOOK A TINY BIT
  3. LIDODERM [Concomitant]
     Dosage: CONSUMER PUTS IN HER LEGS
  4. ACETAMINOPHEN [Concomitant]
     Indication: MUSCLE SPASMS

REACTIONS (1)
  - GASTRIC ULCER [None]
